FAERS Safety Report 22202845 (Version 1)
Quarter: 2023Q2

REPORT INFORMATION
  Report Type: Spontaneous
  Country: US (occurrence: None)
  Receive Date: 20230412
  Receipt Date: 20230412
  Transmission Date: 20230722
  Serious: No
  Sender: FDA-Public Use
  Company Number: None

PATIENT
  Age: 83 Year
  Sex: Male
  Weight: 89.81 kg

DRUGS (15)
  1. ABIRATERONE [Suspect]
     Active Substance: ABIRATERONE
     Indication: Prostate cancer
     Dosage: FREQUENCY : DAILY;?
     Route: 048
  2. ABIRATERONE [Concomitant]
  3. BACLOFEN [Concomitant]
  4. GLIMEPIRIDE [Concomitant]
  5. NORCO [Concomitant]
  6. JANUVIA [Concomitant]
  7. LISINOPRIL [Concomitant]
  8. LUPRON DEPOT [Concomitant]
  9. PREDNISONE [Concomitant]
  10. PROPAFENONE [Concomitant]
  11. SIMVASTATIN [Concomitant]
  12. PAIN RELIEVER [Concomitant]
  13. XARELTO [Concomitant]
  14. ZOFRAN [Concomitant]
  15. ZYTIGA [Concomitant]

REACTIONS (2)
  - Prostate cancer [None]
  - Prostatic specific antigen increased [None]
